FAERS Safety Report 15200921 (Version 1)
Quarter: 2018Q3

REPORT INFORMATION
  Report Type: Spontaneous
  Country: US (occurrence: US)
  Receive Date: 20180726
  Receipt Date: 20180726
  Transmission Date: 20181010
  Serious: No
  Sender: FDA-Public Use
  Company Number: US-AMGEN-USASP2018099782

PATIENT
  Age: 77 Year
  Sex: Female

DRUGS (4)
  1. ENBREL [Suspect]
     Active Substance: ETANERCEPT
     Dosage: 50 MG, 3 OR 4 DOSES PER YEAR
     Route: 065
  2. ENBREL [Suspect]
     Active Substance: ETANERCEPT
     Dosage: 50 MG, 1 OR 2 DOSES PER YEAR
     Route: 065
  3. PREDNISONE. [Concomitant]
     Active Substance: PREDNISONE
     Indication: ARTHRITIS
     Dosage: UNK
     Route: 065
  4. ENBREL [Suspect]
     Active Substance: ETANERCEPT
     Indication: PSORIATIC ARTHROPATHY
     Dosage: 50 MG, AS NECESSARY
     Route: 065
     Dates: start: 19991231

REACTIONS (5)
  - Arthralgia [Not Recovered/Not Resolved]
  - Intentional product misuse [Unknown]
  - Back pain [Unknown]
  - Groin pain [Unknown]
  - Gait disturbance [Unknown]
